FAERS Safety Report 9235606 (Version 1)
Quarter: 2013Q1

REPORT INFORMATION
  Report Type: Spontaneous
  Country: US (occurrence: None)
  Receive Date: 20121031
  Receipt Date: 20121031
  Transmission Date: 20140127
  Serious: No
  Sender: FDA-Public Use
  Company Number: PHEH2012US016922

PATIENT
  Sex: Female

DRUGS (1)
  1. GILENYA (FTY) CAPSULE [Suspect]
     Dosage: UNK UKN, UNK, ORAL

REACTIONS (5)
  - Nervousness [None]
  - Dysphonia [None]
  - Nausea [None]
  - Gastroenteritis viral [None]
  - Headache [None]
